FAERS Safety Report 7082164-7 (Version None)
Quarter: 2010Q4

REPORT INFORMATION
  Report Type: 
  Country: None (occurrence: None)
  Receive Date: 20101103
  Receipt Date: 20101019
  Transmission Date: 20110411
  Serious: Yes (Hospitalization, Other)
  Sender: FDA-Public Use
  Company Number: US-AMGEN-QUU409923

PATIENT

DRUGS (9)
  1. NPLATE [Suspect]
     Indication: IDIOPATHIC THROMBOCYTOPENIC PURPURA
     Dosage: UNK UNK, QWK
     Dates: start: 20081203, end: 20100924
  2. NPLATE [Suspect]
     Dates: start: 20081126
  3. IMMU-G [Concomitant]
     Dosage: UNK UNK, UNK
     Route: 042
     Dates: start: 20080812
  4. AMOXICILLIN [Concomitant]
     Dosage: 500 MG, 2 TIMES/WK
     Route: 048
  5. CHLORHEXIDINE GLUCONATE [Concomitant]
     Dosage: .1 %, BID
     Route: 048
  6. LISINOPRIL [Concomitant]
     Dosage: 5 MG, QD
     Route: 048
  7. PIOGLITAZONE HCL [Concomitant]
     Dosage: 45 MG, QD
     Route: 048
  8. OXYGEN [Concomitant]
  9. CORTICOSTEROID NOS [Concomitant]
     Dosage: UNK UNK, UNK
     Dates: start: 20080327

REACTIONS (9)
  - ASCITES [None]
  - GENERALISED OEDEMA [None]
  - HEPATIC CIRRHOSIS [None]
  - HEPATIC STEATOSIS [None]
  - HYPOXIA [None]
  - LOCALISED OEDEMA [None]
  - PLEURAL EFFUSION [None]
  - PULMONARY OEDEMA [None]
  - SPLENOMEGALY [None]
